FAERS Safety Report 6036863-6 (Version None)
Quarter: 2009Q1

REPORT INFORMATION
  Report Type: 
  Country: None (occurrence: None)
  Receive Date: 20090114
  Receipt Date: 20090105
  Transmission Date: 20090719
  Serious: Yes (Hospitalization, Other)
  Sender: FDA-Public Use
  Company Number: JP-PFIZER INC-2008072959

PATIENT

DRUGS (3)
  1. SUNITINIB MALATE [Suspect]
     Indication: RENAL CELL CARCINOMA
     Dosage: 50 MG, EVERY DAY
     Route: 048
     Dates: start: 20080818
  2. CIMETIDINE [Concomitant]
     Route: 048
  3. ALLOPURINOL [Concomitant]
     Route: 048

REACTIONS (3)
  - PAROTID GLAND ENLARGEMENT [None]
  - PLATELET COUNT DECREASED [None]
  - PYREXIA [None]
